FAERS Safety Report 15263275 (Version 2)
Quarter: 2018Q3

REPORT INFORMATION
  Report Type: Spontaneous
  Country: US (occurrence: US)
  Receive Date: 20180810
  Receipt Date: 20180904
  Transmission Date: 20181010
  Serious: No
  Sender: FDA-Public Use
  Company Number: US-BAUSCH-BL-2018-016609

PATIENT
  Age: 64 Year
  Sex: Male
  Weight: 108.96 kg

DRUGS (5)
  1. XIFAXAN [Suspect]
     Active Substance: RIFAXIMIN
     Indication: OFF LABEL USE
     Dosage: 7 DAYS EVERY MONTH
     Route: 048
     Dates: start: 201808
  2. CELLCEPT [Suspect]
     Active Substance: MYCOPHENOLATE MOFETIL\MYCOPHENOLATE MOFETIL HYDROCHLORIDE
     Indication: PRODUCT USED FOR UNKNOWN INDICATION
     Route: 065
  3. XIFAXAN [Suspect]
     Active Substance: RIFAXIMIN
     Indication: GASTROINTESTINAL BACTERIAL OVERGROWTH
     Dosage: 2 WEEKS
     Route: 048
     Dates: start: 201804, end: 2018
  4. NEURONTIN [Suspect]
     Active Substance: GABAPENTIN
     Indication: FEELING ABNORMAL
     Route: 065
  5. XIFAXAN [Suspect]
     Active Substance: RIFAXIMIN
     Indication: OVERGROWTH BACTERIAL
     Dosage: 14 DAYS.
     Route: 048
     Dates: start: 201711, end: 2017

REACTIONS (3)
  - Insurance issue [Recovered/Resolved]
  - Symptom recurrence [Recovered/Resolved]
  - Therapeutic product effective for unapproved indication [Unknown]

NARRATIVE: CASE EVENT DATE: 2018
